FAERS Safety Report 10106173 (Version 2)
Quarter: 2014Q3

REPORT INFORMATION
  Report Type: Other
  Country: None (occurrence: US)
  Receive Date: 20140424
  Receipt Date: 20140730
  Transmission Date: 20150326
  Serious: Yes (Hospitalization, Other)
  Sender: FDA-Public Use
  Company Number: US-GSKPPD-2014GSK001757

PATIENT
  Age: 50 Year
  Sex: Male
  Weight: 88.08 kg

DRUGS (3)
  1. AVANDIA [Suspect]
     Active Substance: ROSIGLITAZONE MALEATE
     Indication: DIABETES MELLITUS
     Route: 048
     Dates: start: 2001
  2. ASPIRIN. [Concomitant]
     Active Substance: ASPIRIN
  3. VASOTEC [Concomitant]
     Active Substance: ENALAPRIL MALEATE

REACTIONS (3)
  - Sudden cardiac death [None]
  - Cardiac failure congestive [Recovered/Resolved]
  - Cerebrovascular accident [None]

NARRATIVE: CASE EVENT DATE: 20011210
